FAERS Safety Report 9315398 (Version 2)
Quarter: 2013Q3

REPORT INFORMATION
  Report Type: Spontaneous
  Country: AU (occurrence: AU)
  Receive Date: 20130529
  Receipt Date: 20130712
  Transmission Date: 20140515
  Serious: Yes (Death, Other)
  Sender: FDA-Public Use
  Company Number: AU-B.I. PHARMACEUTICALS,INC./RIDGEFIELD-2013-AU-00650AU

PATIENT
  Sex: Female
  Weight: 97 kg

DRUGS (3)
  1. PRADAXA [Suspect]
     Indication: CEREBROVASCULAR ACCIDENT PROPHYLAXIS
     Dosage: 220 MG
  2. PRADAXA [Suspect]
     Indication: ATRIAL FIBRILLATION
  3. PROTON PUMP INHIBITORS [Concomitant]

REACTIONS (5)
  - Sepsis [Fatal]
  - Renal failure [Fatal]
  - Cardiac failure [Unknown]
  - Urinary tract infection [Unknown]
  - Endocarditis bacterial [Unknown]
